FAERS Safety Report 4628992-6 (Version None)
Quarter: 2005Q2

REPORT INFORMATION
  Report Type: 
  Country: None (occurrence: None)
  Receive Date: 20050405
  Receipt Date: 20050405
  Transmission Date: 20051028
  Serious: Yes (Life-Threatening, Hospitalization)
  Sender: FDA-Public Use
  Company Number: None

PATIENT
  Age: 69 Year
  Sex: Female
  Weight: 55 kg

DRUGS (2)
  1. KETEK [Suspect]
     Indication: UPPER RESPIRATORY TRACT INFECTION
     Dosage: 800 MG DAILY ORAL
     Route: 048
     Dates: start: 20050328, end: 20050331
  2. PROMETHAZINE WITH CODEINE SYRUP [Concomitant]

REACTIONS (2)
  - FALL [None]
  - HEMIPARESIS [None]
